FAERS Safety Report 8172235-6 (Version None)
Quarter: 2012Q1

REPORT INFORMATION
  Report Type: 
  Country: None (occurrence: None)
  Receive Date: 20120229
  Receipt Date: 20120224
  Transmission Date: 20120608
  Serious: Yes (Death)
  Sender: FDA-Public Use
  Company Number: PL-BRISTOL-MYERS SQUIBB COMPANY-16338899

PATIENT
  Age: 64 Year
  Sex: Male
  Weight: 76 kg

DRUGS (5)
  1. CISPLATIN [Suspect]
     Indication: NON-SMALL CELL LUNG CANCER
     Dosage: INF: 2
     Route: 042
     Dates: start: 20111123, end: 20111222
  2. METOCARD [Concomitant]
     Dates: start: 20111130
  3. ATROVENT [Concomitant]
     Dates: start: 20111114
  4. GEMZAR [Suspect]
     Indication: NON-SMALL CELL LUNG CANCER
     Dosage: INF: 4
     Route: 042
     Dates: start: 20111123
  5. THEOVENT [Concomitant]
     Dates: start: 20111114

REACTIONS (1)
  - RESPIRATORY TRACT HAEMORRHAGE [None]
